FAERS Safety Report 16848983 (Version 1)
Quarter: 2019Q3

REPORT INFORMATION
  Report Type: Spontaneous
  Country: SE (occurrence: SE)
  Receive Date: 20190925
  Receipt Date: 20190925
  Transmission Date: 20191005
  Serious: Yes (Hospitalization)
  Sender: FDA-Public Use
  Company Number: SE-ROCHE-2413919

PATIENT
  Age: 40 Year
  Sex: Female

DRUGS (1)
  1. MABTHERA [Suspect]
     Active Substance: RITUXIMAB
     Indication: MULTIPLE SCLEROSIS
     Route: 065

REACTIONS (4)
  - Intentional product use issue [Unknown]
  - Intestinal perforation [Unknown]
  - Appendicitis [Unknown]
  - Off label use [Unknown]

NARRATIVE: CASE EVENT DATE: 2018
